FAERS Safety Report 11255819 (Version 2)
Quarter: 2015Q3

REPORT INFORMATION
  Report Type: Spontaneous
  Country: US (occurrence: US)
  Receive Date: 20150709
  Receipt Date: 20150730
  Transmission Date: 20151125
  Serious: Yes (Other)
  Sender: FDA-Public Use
  Company Number: US-BAXALTA-2015BLT000314

PATIENT
  Sex: Male
  Weight: 86 kg

DRUGS (2)
  1. HYQVIA [Suspect]
     Active Substance: HUMAN IMMUNOGLOBULIN G\HYALURONIDASE RECOMBINANT HUMAN
     Indication: IMMUNODEFICIENCY COMMON VARIABLE
     Dosage: 10 G, UNK, RAMP UP
     Route: 058
     Dates: start: 20150601, end: 20150601
  2. HYQVIA [Suspect]
     Active Substance: HUMAN IMMUNOGLOBULIN G\HYALURONIDASE RECOMBINANT HUMAN
     Indication: IMMUNODEFICIENCY

REACTIONS (6)
  - Rash pruritic [Recovered/Resolved]
  - Infusion site erythema [Recovered/Resolved]
  - Dysuria [Recovered/Resolved]
  - Erythema multiforme [Recovered/Resolved]
  - Infusion site pruritus [Recovered/Resolved]
  - Condition aggravated [Recovered/Resolved]

NARRATIVE: CASE EVENT DATE: 2015
